FAERS Safety Report 8454778-0 (Version None)
Quarter: 2012Q2

REPORT INFORMATION
  Report Type: 
  Country: None (occurrence: None)
  Receive Date: 20120621
  Receipt Date: 20120615
  Transmission Date: 20120825
  Serious: Yes (Other)
  Sender: FDA-Public Use
  Company Number: US-JNJFOC-20110608966

PATIENT
  Age: 56 Year
  Sex: Female

DRUGS (11)
  1. REMICADE [Suspect]
     Indication: PRODUCT USED FOR UNKNOWN INDICATION
     Route: 042
     Dates: start: 20090423
  2. REMICADE [Suspect]
     Route: 042
     Dates: start: 20090521
  3. REMICADE [Suspect]
     Route: 042
     Dates: start: 20090618
  4. METHOTREXATE [Concomitant]
     Dosage: 10 DOSES
     Dates: start: 20090113
  5. HYDROXYCHLOROQUINE SULFATE [Concomitant]
     Dates: start: 20090113
  6. REMICADE [Suspect]
     Route: 042
     Dates: start: 20090319
  7. REMICADE [Suspect]
     Route: 042
     Dates: start: 20090122
  8. REMICADE [Suspect]
     Route: 042
     Dates: start: 20090813
  9. REMICADE [Suspect]
     Dosage: RECEIVED 8 DOSES
     Route: 042
     Dates: start: 20090910
  10. REMICADE [Suspect]
     Route: 042
     Dates: start: 20090219
  11. PREDNISONE TAB [Concomitant]
     Dosage: 12 DOSES
     Dates: start: 20090205

REACTIONS (1)
  - PROGRESSIVE MULTIFOCAL LEUKOENCEPHALOPATHY [None]
